FAERS Safety Report 5761919-2 (Version None)
Quarter: 2008Q2

REPORT INFORMATION
  Report Type: 
  Country: None (occurrence: None)
  Receive Date: 20080603
  Receipt Date: 20080523
  Transmission Date: 20081010
  Serious: No
  Sender: FDA-Public Use
  Company Number: 20085007

PATIENT
  Sex: Male

DRUGS (20)
  1. LIORESAL [Suspect]
     Indication: MUSCLE SPASTICITY
     Dosage: 2000 MCG, DAILY, INTRATHECAL
     Route: 037
  2. ERGOCALCIFERAL [Concomitant]
  3. PANCRELIPASE [Concomitant]
  4. NYSTATIN [Concomitant]
  5. LOTRIMIN CREAM [Concomitant]
  6. MUPIROCIN CREAM [Concomitant]
  7. LANSOPRAZOLE [Concomitant]
  8. ALBUTEROL [Concomitant]
  9. BETAMETHASONE CREAM [Concomitant]
  10. DIAZEPAM [Concomitant]
  11. IPRATROPIUM NEBULIZER [Concomitant]
  12. KEPPRA [Concomitant]
  13. LISINOPRIL [Concomitant]
  14. TOBRAMYCIN NEBULIZER [Concomitant]
  15. CHLOROHYDRATE [Concomitant]
  16. BENADRYL [Concomitant]
  17. NEOCATE [Concomitant]
  18. MIRALAX [Concomitant]
  19. PREGABALIN [Concomitant]
  20. ORAL BACLOFEN [Concomitant]

REACTIONS (13)
  - AGITATION [None]
  - CONVULSION [None]
  - DEVICE MALFUNCTION [None]
  - DYSTONIA [None]
  - HYPERHIDROSIS [None]
  - HYPERTONIA [None]
  - NO THERAPEUTIC RESPONSE [None]
  - PLEURAL EFFUSION [None]
  - PRURITUS [None]
  - PYREXIA [None]
  - RETCHING [None]
  - TACHYCARDIA [None]
  - WITHDRAWAL SYNDROME [None]
